FAERS Safety Report 13351815 (Version 1)
Quarter: 2017Q1

REPORT INFORMATION
  Report Type: Spontaneous
  Country: US (occurrence: US)
  Receive Date: 20170320
  Receipt Date: 20170320
  Transmission Date: 20170429
  Serious: Yes (Other)
  Sender: FDA-Public Use
  Company Number: None

PATIENT
  Age: 81 Year
  Sex: Female
  Weight: 79.45 kg

DRUGS (7)
  1. BABY ASPIRIN [Concomitant]
     Active Substance: ASPIRIN
  2. VITAMIN D [Concomitant]
     Active Substance: CHOLECALCIFEROL
  3. MEDOXOMIL [Concomitant]
  4. OMEPRAZOLE 40MG CAP SAND [Suspect]
     Active Substance: OMEPRAZOLE
     Indication: GASTROOESOPHAGEAL REFLUX DISEASE
     Route: 048
     Dates: start: 20170203, end: 20170205
  5. PROBIOTIC [Concomitant]
     Active Substance: PROBIOTICS NOS
  6. OLMESARTAN [Concomitant]
     Active Substance: OLMESARTAN
  7. LEXAPRO [Concomitant]
     Active Substance: ESCITALOPRAM OXALATE

REACTIONS (1)
  - Hallucination [None]

NARRATIVE: CASE EVENT DATE: 20170204
